FAERS Safety Report 8182091-8 (Version None)
Quarter: 2012Q1

REPORT INFORMATION
  Report Type: 
  Country: None (occurrence: None)
  Receive Date: 20120302
  Receipt Date: 20120223
  Transmission Date: 20120608
  Serious: Yes (Hospitalization, Other)
  Sender: FDA-Public Use
  Company Number: PHHY2011US31843

PATIENT
  Sex: Male
  Weight: 26.14 kg

DRUGS (10)
  1. EXJADE [Suspect]
     Dosage: 625 MG DAILY
     Route: 048
     Dates: start: 20091110
  2. AZITHROMYCIN [Concomitant]
     Dosage: 325 MG EVERY 4 H PRN
     Dates: start: 20110323, end: 20110323
  3. METHYLPREDNISOLONE [Concomitant]
     Dosage: 50 MG EVERY 12 H
     Route: 042
     Dates: start: 20110323, end: 20110323
  4. EXJADE [Suspect]
     Dosage: 750 MG DAILY
     Route: 048
     Dates: start: 20100826
  5. CEFTRIAXONE [Concomitant]
     Dosage: 1360 MG ONCE
     Route: 042
     Dates: start: 20110322, end: 20110322
  6. AZITHROMYCIN [Concomitant]
     Dosage: 125 MG DAILY
     Route: 048
     Dates: start: 20110324, end: 20110324
  7. METHYLPREDNISOLONE [Concomitant]
     Dosage: 27 MG EVERY 12 H
     Route: 042
     Dates: start: 20110323, end: 20110324
  8. POLYMYXIN [Concomitant]
     Dosage: UNK
     Dates: start: 20100728, end: 20100731
  9. AMOXICILLIN [Concomitant]
     Dosage: 480 MG EVERY 12 H
     Route: 048
     Dates: start: 20100728, end: 20100806
  10. CEFUROXIME [Concomitant]
     Dosage: 1350 MG, UNK
     Route: 042
     Dates: start: 20110323, end: 20110324

REACTIONS (9)
  - PYREXIA [None]
  - WHEEZING [None]
  - ASTHMA [None]
  - OTITIS MEDIA [None]
  - RESPIRATORY DISORDER [None]
  - PNEUMONIA [None]
  - ACUTE CHEST SYNDROME [None]
  - COUGH [None]
  - LUNG INFILTRATION [None]
